FAERS Safety Report 13569880 (Version 2)
Quarter: 2017Q2

REPORT INFORMATION
  Report Type: Spontaneous
  Country: US (occurrence: US)
  Receive Date: 20170522
  Receipt Date: 20170607
  Transmission Date: 20170830
  Serious: Yes (Death)
  Sender: FDA-Public Use
  Company Number: US-PFIZER INC-2017217474

PATIENT
  Age: 54 Year
  Sex: Male

DRUGS (8)
  1. XANAX XR [Suspect]
     Active Substance: ALPRAZOLAM
     Indication: PANIC ATTACK
     Dosage: 2 MG, 1X/DAY
     Route: 048
     Dates: start: 20160114
  2. LEXAPRO [Suspect]
     Active Substance: ESCITALOPRAM OXALATE
     Indication: PANIC ATTACK
     Dosage: 20 MG, 1X/DAY (AM)
     Dates: start: 20160114
  3. HYDROCODONE [Suspect]
     Active Substance: HYDROCODONE
     Indication: NECK SURGERY
  4. LEXAPRO [Suspect]
     Active Substance: ESCITALOPRAM OXALATE
     Indication: ANXIETY
  5. XANAX XR [Suspect]
     Active Substance: ALPRAZOLAM
     Indication: ANXIETY DISORDER
  6. XANAX [Suspect]
     Active Substance: ALPRAZOLAM
     Indication: ANXIETY DISORDER
  7. XANAX [Suspect]
     Active Substance: ALPRAZOLAM
     Indication: PANIC ATTACK
     Dosage: 0.5 MG, 2X/DAY
     Route: 048
     Dates: start: 20160114
  8. HYDROCODONE [Suspect]
     Active Substance: HYDROCODONE
     Indication: PAIN
     Dosage: UNK, AS NEEDED
     Dates: start: 20160803

REACTIONS (1)
  - Toxicity to various agents [Fatal]
